FAERS Safety Report 8870006 (Version 2)
Quarter: 2013Q1

REPORT INFORMATION
  Report Type: Spontaneous
  Country: FR (occurrence: FR)
  Receive Date: 20121026
  Receipt Date: 20130325
  Transmission Date: 20140127
  Serious: Yes (Death, Hospitalization)
  Sender: FDA-Public Use
  Company Number: FR-B.I. PHARMACEUTICALS,INC./RIDGEFIELD-2012-FF-01539FF

PATIENT
  Age: 84 Year
  Sex: Female

DRUGS (2)
  1. PRADAXA [Suspect]
     Indication: ATRIAL FIBRILLATION
  2. KARDEGIC [Suspect]

REACTIONS (6)
  - Shock haemorrhagic [Fatal]
  - Aortic aneurysm rupture [Fatal]
  - Anuria [Fatal]
  - Hypotension [Fatal]
  - Haemoglobin decreased [Fatal]
  - Dilutional coagulopathy [Fatal]
